FAERS Safety Report 5754504-X (Version None)
Quarter: 2008Q2

REPORT INFORMATION
  Report Type: 
  Country: None (occurrence: None)
  Receive Date: 20080530
  Receipt Date: 20080421
  Transmission Date: 20081010
  Serious: No
  Sender: FDA-Public Use
  Company Number: US-BOEHRINGER INGELHEIM GMBH, GERMANY-2008-BP-03004BP

PATIENT
  Age: 87 Year
  Sex: Male

DRUGS (3)
  1. COMBIVENT [Suspect]
     Indication: CHRONIC OBSTRUCTIVE PULMONARY DISEASE
     Route: 055
     Dates: start: 19980101
  2. COMBIVENT [Suspect]
     Indication: EMPHYSEMA
  3. ALBUTEROL [Concomitant]

REACTIONS (1)
  - DYSGEUSIA [None]
